FAERS Safety Report 20474856 (Version 2)
Quarter: 2022Q2

REPORT INFORMATION
  Report Type: Report from Study
  Country: DE (occurrence: DE)
  Receive Date: 20220215
  Receipt Date: 20220414
  Transmission Date: 20220721
  Serious: Yes (Other)
  Sender: FDA-Public Use
  Company Number: DE-AMGEN-DEUSL2022022915

PATIENT
  Age: 60 Year
  Sex: Female

DRUGS (1)
  1. ADALIMUMAB [Suspect]
     Active Substance: ADALIMUMAB
     Indication: Psoriatic arthropathy
     Dosage: UNK UNK, Q2WK
     Route: 065
     Dates: start: 20200122, end: 202203

REACTIONS (1)
  - Renal impairment [Not Recovered/Not Resolved]
